FAERS Safety Report 17840283 (Version 1)
Quarter: 2020Q2

REPORT INFORMATION
  Report Type: Spontaneous
  Country: GB (occurrence: GB)
  Receive Date: 20200529
  Receipt Date: 20200529
  Transmission Date: 20200714
  Serious: Yes (Hospitalization)
  Sender: FDA-Public Use
  Company Number: GB-TAKEDA-2020TUS023658

PATIENT
  Sex: Female

DRUGS (2)
  1. ENTYVIO [Suspect]
     Active Substance: VEDOLIZUMAB
     Indication: CROHN^S DISEASE
     Dosage: 300 MILLIGRAM
     Route: 042
  2. ENTYVIO [Suspect]
     Active Substance: VEDOLIZUMAB
     Dosage: 300 MILLIGRAM, Q4WEEKS
     Route: 042

REACTIONS (2)
  - Fatigue [Recovered/Resolved]
  - Abdominal pain upper [Recovered/Resolved]
